FAERS Safety Report 12969875 (Version 2)
Quarter: 2016Q4

REPORT INFORMATION
  Report Type: Spontaneous
  Country: BG (occurrence: BG)
  Receive Date: 20161123
  Receipt Date: 20161130
  Transmission Date: 20170207
  Serious: Yes (Death, Hospitalization)
  Sender: FDA-Public Use
  Company Number: BG-SA-2016SA212337

PATIENT
  Age: 36 Year
  Sex: Female

DRUGS (4)
  1. STREPTOMYCIN SULFATE. [Suspect]
     Active Substance: STREPTOMYCIN SULFATE
     Indication: TUBERCULOSIS
     Route: 065
  2. ISONIAZID. [Suspect]
     Active Substance: ISONIAZID
     Indication: TUBERCULOSIS
     Route: 065
  3. RIFAMPICIN [Suspect]
     Active Substance: RIFAMPIN
     Indication: TUBERCULOSIS
     Route: 065
  4. PYRAZINAMIDE. [Suspect]
     Active Substance: PYRAZINAMIDE
     Indication: TUBERCULOSIS
     Route: 065

REACTIONS (10)
  - Pulmonary tuberculosis [Fatal]
  - Drug ineffective [Fatal]
  - Cerebral ischaemia [Fatal]
  - Pneumonia [Fatal]
  - Condition aggravated [Fatal]
  - Encephalitis [Fatal]
  - IIIrd nerve disorder [Fatal]
  - Meningitis tuberculous [Fatal]
  - VIth nerve disorder [Fatal]
  - Bronchiolitis [Fatal]
